FAERS Safety Report 9268348 (Version 5)
Quarter: 2015Q1

REPORT INFORMATION
  Report Type: Spontaneous
  Country: US (occurrence: US)
  Receive Date: 20130502
  Receipt Date: 20150326
  Transmission Date: 20150721
  Serious: No
  Sender: FDA-Public Use
  Company Number: US-009507513-1305USA000390

PATIENT
  Sex: Male

DRUGS (1)
  1. PROPECIA [Suspect]
     Active Substance: FINASTERIDE
     Indication: ALOPECIA
     Dosage: 1 MG, QD
     Route: 048
     Dates: start: 2004

REACTIONS (15)
  - Meniscus injury [Unknown]
  - Nephrolithiasis [Unknown]
  - Back pain [Unknown]
  - Meniscus injury [Unknown]
  - Meniscus operation [Unknown]
  - Fibrous histiocytoma [Unknown]
  - Psoriasis [Unknown]
  - Seborrhoeic keratosis [Unknown]
  - Erectile dysfunction [Not Recovered/Not Resolved]
  - Meniscus operation [Unknown]
  - Knee operation [Unknown]
  - Drug ineffective [Recovered/Resolved]
  - Hypogonadism [Unknown]
  - Actinic keratosis [Unknown]
  - Sexual dysfunction [Not Recovered/Not Resolved]

NARRATIVE: CASE EVENT DATE: 2007
